FAERS Safety Report 8387867-X (Version None)
Quarter: 2012Q2

REPORT INFORMATION
  Report Type: 
  Country: None (occurrence: None)
  Receive Date: 20120525
  Receipt Date: 20120521
  Transmission Date: 20120825
  Serious: Yes (Hospitalization)
  Sender: FDA-Public Use
  Company Number: TR-BRACCO-000046

PATIENT
  Sex: Female

DRUGS (1)
  1. IOPAMIDOL [Suspect]
     Indication: ANGIOGRAM
     Route: 042
     Dates: start: 20120426, end: 20120426

REACTIONS (3)
  - TREMOR [None]
  - CHILLS [None]
  - ANXIETY [None]
